FAERS Safety Report 8450419-7 (Version None)
Quarter: 2012Q2

REPORT INFORMATION
  Report Type: 
  Country: None (occurrence: None)
  Receive Date: 20120613
  Receipt Date: 20120528
  Transmission Date: 20120825
  Serious: Yes (Other)
  Sender: FDA-Public Use
  Company Number: 2012AP000798

PATIENT
  Age: 75 Year
  Sex: Male

DRUGS (3)
  1. LATANOPROST [Suspect]
     Indication: GLAUCOMA
     Dosage: UNKNOWN;EYE_DROP;OPH;UNKNOWN
  2. RABEPRAZOLE SODIUM [Concomitant]
  3. LATANOPROST [Concomitant]

REACTIONS (2)
  - TRABECULOPLASTY [None]
  - DRUG INEFFECTIVE [None]
